FAERS Safety Report 5140415-X (Version None)
Quarter: 2006Q4

REPORT INFORMATION
  Report Type: 
  Country: None (occurrence: None)
  Receive Date: 20061024
  Receipt Date: 20061004
  Transmission Date: 20070319
  Serious: Yes (Hospitalization, Other)
  Sender: FDA-Public Use
  Company Number: DE200609001329

PATIENT
  Age: 43 Year
  Sex: Male

DRUGS (6)
  1. GEMZAR [Suspect]
     Indication: PANCREATIC CARCINOMA
     Dosage: 1000 MG/M2, INTRAVENOUS
     Route: 042
     Dates: start: 20051001
  2. TORSEMIDE [Concomitant]
  3. DURAGESIC-100 [Concomitant]
  4. MCP (METOCLOPRAMIDE HYDROCHLORIDE) [Concomitant]
  5. MOVICOL (MACROGOL, POTASSIUM CHLORIDE, SODIUM BICARBONATE, SODIUM CHLO [Concomitant]
  6. DIURETICS [Concomitant]

REACTIONS (14)
  - ASCITES [None]
  - BEDRIDDEN [None]
  - CARBOHYDRATE ANTIGEN 19-9 INCREASED [None]
  - CHEST X-RAY ABNORMAL [None]
  - FIBRONECTIN INCREASED [None]
  - GENERALISED OEDEMA [None]
  - HYPOALBUMINAEMIA [None]
  - INFLUENZA [None]
  - LUNG INFILTRATION [None]
  - PLEURAL EFFUSION [None]
  - PROTEIN URINE PRESENT [None]
  - RETROPERITONEAL CANCER [None]
  - ULCER HAEMORRHAGE [None]
  - WEIGHT INCREASED [None]
